FAERS Safety Report 17717847 (Version 3)
Quarter: 2020Q2

REPORT INFORMATION
  Report Type: Report from Study
  Country: KR (occurrence: KR)
  Receive Date: 20200428
  Receipt Date: 20200526
  Transmission Date: 20200714
  Serious: Yes (Hospitalization, Other)
  Sender: FDA-Public Use
  Company Number: NVSC2020KR058269

PATIENT
  Age: 69 Year
  Sex: Male
  Weight: 45 kg

DRUGS (3)
  1. ALPELISIB [Suspect]
     Active Substance: ALPELISIB
     Dosage: 300 MG, QD
     Route: 048
     Dates: start: 20200408, end: 20200413
  2. ALPELISIB [Suspect]
     Active Substance: ALPELISIB
     Indication: EPIGLOTTIC CANCER
     Dosage: 350 MG, QD
     Route: 048
     Dates: start: 20200219, end: 20200304
  3. ALPELISIB [Suspect]
     Active Substance: ALPELISIB
     Dosage: 350 MG, QD
     Route: 048
     Dates: start: 20200323, end: 20200401

REACTIONS (3)
  - Pneumomediastinum [Recovered/Resolved]
  - Pneumonia [Not Recovered/Not Resolved]
  - Pneumothorax [Recovered/Resolved with Sequelae]

NARRATIVE: CASE EVENT DATE: 20200222
